FAERS Safety Report 5458578-5 (Version None)
Quarter: 2007Q3

REPORT INFORMATION
  Report Type: 
  Country: None (occurrence: None)
  Receive Date: 20070919
  Receipt Date: 20070424
  Transmission Date: 20080115
  Serious: No
  Sender: FDA-Public Use
  Company Number: US-ASTRAZENECA-2007UW07078

PATIENT
  Sex: Male

DRUGS (6)
  1. SEROQUEL [Suspect]
     Indication: BIPOLAR DISORDER
     Route: 048
  2. SEROQUEL [Suspect]
     Route: 048
  3. SEROQUEL [Suspect]
     Route: 048
     Dates: start: 20070409
  4. DOXYCYCLINE [Concomitant]
  5. FLOMAX [Concomitant]
  6. SIMVASTATIN [Concomitant]

REACTIONS (10)
  - CONFUSIONAL STATE [None]
  - DIARRHOEA [None]
  - HANGOVER [None]
  - INCREASED APPETITE [None]
  - LIBIDO INCREASED [None]
  - LOGORRHOEA [None]
  - MENTAL STATUS CHANGES [None]
  - SOMNOLENCE [None]
  - THERAPEUTIC RESPONSE UNEXPECTED [None]
  - WEIGHT DECREASED [None]
